FAERS Safety Report 8313151-6 (Version None)
Quarter: 2012Q2

REPORT INFORMATION
  Report Type: 
  Country: None (occurrence: None)
  Receive Date: 20120426
  Receipt Date: 20120425
  Transmission Date: 20120825
  Serious: No
  Sender: FDA-Public Use
  Company Number: US-PFIZER INC-2012096085

PATIENT
  Sex: Female
  Weight: 59 kg

DRUGS (4)
  1. CHANTIX [Suspect]
     Indication: SMOKING CESSATION THERAPY
     Dosage: 0.5 MG, DAILY
     Route: 048
  2. CYMBALTA [Concomitant]
     Indication: DEPRESSION
     Dosage: 60 MG, DAILY
  3. CHANTIX [Suspect]
     Dosage: 0.5 MG, DAILY
     Route: 048
     Dates: start: 20120301, end: 20120401
  4. CYMBALTA [Concomitant]
     Indication: PAIN

REACTIONS (4)
  - NAUSEA [None]
  - IRRITABILITY [None]
  - ABNORMAL DREAMS [None]
  - HEADACHE [None]
